FAERS Safety Report 11878709 (Version 2)
Quarter: 2016Q1

REPORT INFORMATION
  Report Type: Spontaneous
  Country: TH (occurrence: TH)
  Receive Date: 20151230
  Receipt Date: 20160104
  Transmission Date: 20160526
  Serious: Yes (Other)
  Sender: FDA-Public Use
  Company Number: TH-JNJFOC-20151223022

PATIENT
  Age: 54 Year
  Sex: Male
  Weight: 70 kg

DRUGS (3)
  1. ZYTIGA [Suspect]
     Active Substance: ABIRATERONE ACETATE
     Indication: PROSTATE CANCER METASTATIC
     Dosage: DAILY AT 11 AM FOR 3 CONSECUTIVE DAYS
     Route: 048
     Dates: start: 20151226
  2. JANUMET [Concomitant]
     Active Substance: METFORMIN HYDROCHLORIDE\SITAGLIPTIN PHOSPHATE
     Route: 065
  3. LERCANIDIPINE [Concomitant]
     Active Substance: LERCANIDIPINE
     Indication: HYPERTENSION
     Route: 065

REACTIONS (3)
  - Palpitations [Recovered/Resolved]
  - Heart rate increased [Recovered/Resolved]
  - Blood pressure increased [Recovered/Resolved]

NARRATIVE: CASE EVENT DATE: 20151226
